FAERS Safety Report 6725830 (Version 2)
Quarter: 2012Q4

REPORT INFORMATION
  Report Type: Report from Study
  Country: US (occurrence: US)
  Receive Date: 20080813
  Receipt Date: 20121130
  Transmission Date: 20130627
  Serious: Yes (Death, Other)
  Sender: FDA-Public Use
  Company Number: US-ROCHE-579676

PATIENT
  Age: 59 Year
  Sex: Female
  Weight: 44.5 kg

DRUGS (6)
  1. CAPECITABINE [Suspect]
     Indication: GALLBLADDER CANCER METASTATIC
     Dosage: 1500 MG AM AND 1500 MG PM.
     Route: 048
  2. ZOFRAN [Concomitant]
  3. AMBIEN [Concomitant]
  4. POTASSIUM [Concomitant]
  5. MORPHINE SULFATE [Concomitant]
  6. VICODIN [Concomitant]

REACTIONS (2)
  - Death [Fatal]
  - Unevaluable event [Unknown]
